FAERS Safety Report 11043139 (Version 2)
Quarter: 2015Q2

REPORT INFORMATION
  Report Type: Spontaneous
  Country: PL (occurrence: PL)
  Receive Date: 20150417
  Receipt Date: 20150515
  Transmission Date: 20150821
  Serious: Yes (Hospitalization, Other)
  Sender: FDA-Public Use
  Company Number: PL-MERCK-1504POL016705

PATIENT
  Age: 6 Year
  Sex: Male

DRUGS (7)
  1. NOXAFIL [Suspect]
     Active Substance: POSACONAZOLE
     Indication: PROPHYLAXIS
     Dosage: 5.5 ML EVERY 12 HOURS
     Route: 048
     Dates: start: 20141229, end: 20150108
  2. BISEPTOL (SULFAMETHOXAZOLE (+) TRIMETHOPRIM) [Concomitant]
     Indication: ANTIFUNGAL PROPHYLAXIS
     Dosage: 720 MG, QD
     Dates: start: 20141209
  3. RAMIPRIL. [Concomitant]
     Active Substance: RAMIPRIL
     Indication: HYPERTENSION
     Dosage: 2.5 MG, QD
     Dates: start: 20141230, end: 20150216
  4. VINCRISTINE SULFATE. [Interacting]
     Active Substance: VINCRISTINE SULFATE
     Indication: ACUTE LYMPHOCYTIC LEUKAEMIA
     Dosage: 1.5 MG PER WEEK
     Route: 042
     Dates: start: 20141217, end: 20150106
  5. ENCORTON [Concomitant]
     Active Substance: PREDNISONE
     Indication: ACUTE LYMPHOCYTIC LEUKAEMIA
     Dosage: 60 MG, QD
     Dates: start: 20141209, end: 20150117
  6. AMLODIPINE [Concomitant]
     Active Substance: AMLODIPINE BESYLATE
     Indication: HYPERTENSION
     Dosage: 5 MG, QD
     Dates: start: 20141225, end: 20150216
  7. HYDROCHLOROTHIAZIDE. [Concomitant]
     Active Substance: HYDROCHLOROTHIAZIDE
     Indication: HYPERTENSION
     Dosage: 25 MG, QD
     Route: 048
     Dates: start: 20141230, end: 20150102

REACTIONS (3)
  - Ileus paralytic [Recovered/Resolved]
  - Agranulocytosis [Unknown]
  - Drug interaction [Unknown]

NARRATIVE: CASE EVENT DATE: 20150107
